FAERS Safety Report 14018406 (Version 1)
Quarter: 2017Q3

REPORT INFORMATION
  Report Type: Spontaneous
  Country: US (occurrence: US)
  Receive Date: 20170928
  Receipt Date: 20170928
  Transmission Date: 20171128
  Serious: Yes (Hospitalization, Other)
  Sender: FDA-Public Use
  Company Number: US-TAKEDA-2017TUS019849

PATIENT
  Age: 47 Year
  Sex: Male

DRUGS (3)
  1. ENTYVIO [Suspect]
     Active Substance: VEDOLIZUMAB
     Indication: CROHN^S DISEASE
     Dosage: 300 MG, UNK
     Route: 042
  2. DOXYCYCLINE. [Suspect]
     Active Substance: DOXYCYCLINE
     Indication: MENINGITIS
     Dosage: UNK
     Route: 065
  3. IMURAN [Suspect]
     Active Substance: AZATHIOPRINE
     Indication: CROHN^S DISEASE
     Dosage: UNK
     Route: 065

REACTIONS (3)
  - Meningitis [Recovering/Resolving]
  - Clostridium difficile infection [Recovering/Resolving]
  - Lower respiratory tract infection bacterial [Recovered/Resolved]
